FAERS Safety Report 4752499-9 (Version None)
Quarter: 2005Q3

REPORT INFORMATION
  Report Type: 
  Country: None (occurrence: None)
  Receive Date: 20050825
  Receipt Date: 20050815
  Transmission Date: 20060218
  Serious: Yes (Life-Threatening)
  Sender: FDA-Public Use
  Company Number: GB-ROCHE-414250

PATIENT
  Age: 65 Year
  Sex: Female

DRUGS (4)
  1. XELODA [Suspect]
     Route: 048
     Dates: start: 20050526, end: 20050724
  2. LISINOPRIL [Concomitant]
     Indication: BLOOD PRESSURE INCREASED
     Route: 048
  3. PREDNISOLONE [Concomitant]
     Indication: LETHARGY
     Route: 048
     Dates: start: 20050623
  4. QUETIAPINE FUMARATE [Concomitant]
     Indication: DEPRESSION
     Route: 048

REACTIONS (1)
  - ANGIONEUROTIC OEDEMA [None]
